FAERS Safety Report 6998600-8 (Version None)
Quarter: 2010Q3

REPORT INFORMATION
  Report Type: 
  Country: None (occurrence: None)
  Receive Date: 20100920
  Receipt Date: 20070705
  Transmission Date: 20110219
  Serious: Yes (Other)
  Sender: FDA-Public Use
  Company Number: US-ASTRAZENECA-2006UW08171

PATIENT
  Age: 10485 Day
  Sex: Male
  Weight: 69.6 kg

DRUGS (7)
  1. SEROQUEL [Suspect]
     Indication: BIPOLAR DISORDER
     Dosage: 300-600 MG
     Route: 048
     Dates: start: 20030515
  2. SEROQUEL [Suspect]
     Indication: PARANOIA
     Dosage: 300-600 MG
     Route: 048
     Dates: start: 20030515
  3. ZANTAC [Concomitant]
     Dates: start: 20040623
  4. NICOTINE [Concomitant]
     Dates: start: 20040623
  5. PAXIL [Concomitant]
     Dosage: 10-20 MG
     Route: 048
     Dates: start: 20030515
  6. DEPAKOTE [Concomitant]
     Indication: AFFECTIVE DISORDER
     Dates: start: 20030515
  7. IBUPROFEN [Concomitant]
     Dosage: 600 MG QID PRN
     Route: 048
     Dates: start: 20030515

REACTIONS (3)
  - PANCREATITIS [None]
  - PANCREATITIS ACUTE [None]
  - PANCREATITIS CHRONIC [None]
